FAERS Safety Report 9657266 (Version 1)
Quarter: 2013Q4

REPORT INFORMATION
  Report Type: Spontaneous
  Country: US (occurrence: US)
  Receive Date: 20131030
  Receipt Date: 20131030
  Transmission Date: 20140711
  Serious: Yes (Death, Hospitalization)
  Sender: FDA-Public Use
  Company Number: US-SA-2013SA109307

PATIENT
  Age: 45 Year
  Sex: Female
  Weight: 61.24 kg

DRUGS (3)
  1. PLAVIX [Suspect]
     Indication: MYOCARDIAL INFARCTION
     Route: 048
     Dates: start: 1999, end: 20050412
  2. PRAMLINTIDE ACETATE [Suspect]
     Indication: TYPE 2 DIABETES MELLITUS
     Route: 058
     Dates: start: 20050101, end: 20050412
  3. ASPIRIN [Concomitant]
     Indication: MYOCARDIAL INFARCTION
     Route: 048
     Dates: start: 1999, end: 20050412

REACTIONS (2)
  - Pulmonary embolism [Recovered/Resolved]
  - Acute myocardial infarction [Fatal]
